FAERS Safety Report 9046575 (Version 1)
Quarter: 2013Q1

REPORT INFORMATION
  Report Type: Spontaneous
  Country: US (occurrence: None)
  Receive Date: 20130128
  Receipt Date: 20130128
  Transmission Date: 20140127
  Serious: Yes (Other)
  Sender: FDA-Public Use
  Company Number: None

PATIENT
  Age: 74 Year
  Sex: Female

DRUGS (1)
  1. FORTEO [Suspect]
     Route: 058
     Dates: start: 20121106, end: 20130128

REACTIONS (5)
  - Pain [None]
  - Injection site erythema [None]
  - Injection site bruising [None]
  - Headache [None]
  - Dizziness [None]
